FAERS Safety Report 5512830-3 (Version None)
Quarter: 2007Q4

REPORT INFORMATION
  Report Type: 
  Country: None (occurrence: None)
  Receive Date: 20071108
  Receipt Date: 20071108
  Transmission Date: 20080405
  Serious: Yes (Other)
  Sender: FDA-Public Use
  Company Number: None

PATIENT
  Age: 27 Year
  Sex: Female
  Weight: 58.0604 kg

DRUGS (6)
  1. SEROQUEL [Suspect]
     Indication: ANXIETY
     Dosage: 75MG ONCE A DAY PO
     Route: 048
     Dates: start: 20071011, end: 20071106
  2. SEROQUEL [Suspect]
     Indication: INSOMNIA
     Dosage: 75MG ONCE A DAY PO
     Route: 048
     Dates: start: 20071011, end: 20071106
  3. LAMCITAL [Concomitant]
  4. ADVAIR DISKUS 100/50 [Concomitant]
  5. MOTRIN [Concomitant]
  6. ALBUTEROL [Concomitant]

REACTIONS (1)
  - PARAESTHESIA [None]
